FAERS Safety Report 5513523-9 (Version None)
Quarter: 2007Q4

REPORT INFORMATION
  Report Type: 
  Country: None (occurrence: None)
  Receive Date: 20071108
  Receipt Date: 20071024
  Transmission Date: 20080405
  Serious: Yes (Other)
  Sender: FDA-Public Use
  Company Number: 2007S1010500

PATIENT
  Age: 67 Year
  Sex: Female

DRUGS (6)
  1. NOTEN (ATENOLOL) (50 MG) [Suspect]
     Indication: HYPERTENSION
     Dosage: 50 MG, TWICE A DAY; ORAL, 50 MG, DAILY; ORAL
     Route: 048
     Dates: start: 20070901, end: 20071023
  2. NOTEN (ATENOLOL) (50 MG) [Suspect]
     Indication: HYPERTENSION
     Dosage: 50 MG, TWICE A DAY; ORAL, 50 MG, DAILY; ORAL
     Route: 048
     Dates: start: 20071024
  3. DAPA-TABS [Concomitant]
  4. HORMONE REPLACEMENT THERAPY [Concomitant]
  5. NEXIUM [Concomitant]
  6. DOLASED [Concomitant]

REACTIONS (5)
  - ABNORMAL SLEEP-RELATED EVENT [None]
  - HALLUCINATION, VISUAL [None]
  - MIDDLE INSOMNIA [None]
  - NIGHTMARE [None]
  - SCREAMING [None]
